FAERS Safety Report 6215328-2 (Version None)
Quarter: 2009Q2

REPORT INFORMATION
  Report Type: 
  Country: None (occurrence: None)
  Receive Date: 20090604
  Receipt Date: 20090527
  Transmission Date: 20091009
  Serious: Yes (Other)
  Sender: FDA-Public Use
  Company Number: PHEH2009US05351

PATIENT
  Sex: Male

DRUGS (3)
  1. EXELON [Suspect]
     Dosage: 6 MG, BID
  2. EXELON [Suspect]
     Dosage: UNK
  3. NAMENDA [Concomitant]

REACTIONS (3)
  - ABNORMAL BEHAVIOUR [None]
  - MUSCULAR WEAKNESS [None]
  - POVERTY OF SPEECH [None]
